FAERS Safety Report 24943179 (Version 6)
Quarter: 2025Q3

REPORT INFORMATION
  Report Type: Spontaneous
  Country: JP (occurrence: JP)
  Receive Date: 20250207
  Receipt Date: 20250924
  Transmission Date: 20251020
  Serious: Yes (Hospitalization, Other)
  Sender: APELLIS PHARMACEUTICALS
  Company Number: JP-BIOVITRUM-2025-JP-000191

PATIENT
  Weight: 46 kg

DRUGS (3)
  1. EMPAVELI [Suspect]
     Active Substance: PEGCETACOPLAN
     Indication: Paroxysmal nocturnal haemoglobinuria
     Route: 058
     Dates: start: 20241220
  2. EMPAVELI [Suspect]
     Active Substance: PEGCETACOPLAN
     Indication: Anaemia
  3. EMPAVELI [Suspect]
     Active Substance: PEGCETACOPLAN

REACTIONS (12)
  - Injection site eczema [Recovering/Resolving]
  - Influenza [Unknown]
  - Injection site paraesthesia [Unknown]
  - Injection site swelling [Recovering/Resolving]
  - Graves^ disease [Not Recovered/Not Resolved]
  - Injection site haemorrhage [Unknown]
  - Norovirus infection [Recovered/Resolved]
  - Injection site discomfort [Unknown]
  - Palpitations [Unknown]
  - Condition aggravated [Not Recovered/Not Resolved]
  - Arrhythmia [Unknown]
  - Hypoaesthesia [Unknown]

NARRATIVE: CASE EVENT DATE: 20250103
